FAERS Safety Report 10206976 (Version 1)
Quarter: 2014Q2

REPORT INFORMATION
  Report Type: Spontaneous
  Country: US (occurrence: US)
  Receive Date: 20140530
  Receipt Date: 20140530
  Transmission Date: 20141212
  Serious: No
  Sender: FDA-Public Use
  Company Number: US-VIIV HEALTHCARE LIMITED-A1045774A

PATIENT
  Age: 26 Year
  Sex: Female

DRUGS (4)
  1. ZIDOVUDINE [Suspect]
     Indication: HIV INFECTION
     Route: 065
  2. DIDANOSINE [Suspect]
     Indication: HIV INFECTION
     Route: 065
  3. INDINAVIR SULFATE ETHANOLATE [Suspect]
     Indication: HIV INFECTION
  4. BACTRIM [Concomitant]
     Indication: URINARY TRACT INFECTION

REACTIONS (1)
  - Blood creatinine increased [Unknown]
